FAERS Safety Report 8552751-5 (Version None)
Quarter: 2012Q3

REPORT INFORMATION
  Report Type: 
  Country: None (occurrence: None)
  Receive Date: 20120731
  Receipt Date: 20120726
  Transmission Date: 20120928
  Serious: Yes (Hospitalization)
  Sender: FDA-Public Use
  Company Number: PHEH2012US014642

PATIENT
  Sex: Female

DRUGS (17)
  1. MAGNESIUM SULFATE [Concomitant]
     Indication: BLOOD ELECTROLYTES ABNORMAL
     Dosage: 500 MG, BID
     Route: 048
  2. RECLAST [Suspect]
     Indication: OSTEOPOROSIS
     Dosage: YEARLY INFUSION
     Route: 042
     Dates: start: 20120724
  3. FUROSEMIDE [Concomitant]
     Indication: DIURETIC THERAPY
     Dosage: 10 MG, QD
     Route: 048
  4. KLOR-CON [Concomitant]
     Indication: BLOOD ELECTROLYTES ABNORMAL
     Dosage: 20 MEQ, BID
     Route: 048
  5. SINGULAIR [Concomitant]
     Indication: ASTHMA
     Dosage: 10 MG, QD
     Route: 048
  6. SYNTHROID [Concomitant]
     Indication: THYROID DISORDER
     Dosage: 137 MG, QD
     Route: 048
  7. VITAMIN D [Concomitant]
     Indication: OSTEOPOROSIS
     Dosage: 4000 IU, QD
     Route: 048
  8. CALCIUM CARBONATE [Concomitant]
     Indication: OSTEOPOROSIS
     Dosage: 600 MG, BID
     Route: 048
  9. BACLOFEN [Concomitant]
     Indication: MULTIPLE SCLEROSIS
     Dosage: 10 MG, BID
     Route: 048
  10. VERAPAMIL [Concomitant]
     Indication: CARDIAC DISORDER
     Dosage: 240 MG, QD
     Route: 048
  11. PREDNISONE [Concomitant]
     Indication: MULTIPLE SCLEROSIS
     Dosage: 10 MG, QOD EVERY OTHER DAY
     Route: 048
  12. GABAPENTIN [Concomitant]
     Indication: MULTIPLE SCLEROSIS
     Dosage: 400-600 MG TWICE A DAY
     Route: 048
  13. LANSOPRAZOLE [Concomitant]
     Indication: GASTROOESOPHAGEAL REFLUX DISEASE
     Dosage: 30 MG, QD
     Route: 048
  14. ASPIRIN [Concomitant]
     Dosage: 81 MG, QD
     Route: 048
  15. CALCIUM CARBONATE [Concomitant]
     Indication: BLOOD ELECTROLYTES ABNORMAL
  16. CELEBREX [Concomitant]
     Indication: ARTHRITIS
     Dosage: 200 MG, EVERY 3RD DAY
     Route: 048
  17. MULTI-VITAMINS [Concomitant]
     Dosage: UNK UKN, QD
     Route: 048

REACTIONS (1)
  - LOSS OF CONSCIOUSNESS [None]
